FAERS Safety Report 5703123-X (Version None)
Quarter: 2008Q2

REPORT INFORMATION
  Report Type: 
  Country: None (occurrence: None)
  Receive Date: 20080411
  Receipt Date: 20080331
  Transmission Date: 20081010
  Serious: Yes (Hospitalization)
  Sender: FDA-Public Use
  Company Number: GB-ROCHE-551611

PATIENT
  Sex: Female
  Weight: 86 kg

DRUGS (10)
  1. ORLISTAT [Suspect]
     Indication: OBESITY
     Dosage: RE-ISSUED ORLISTAT ON 25/2/2008
     Route: 048
     Dates: start: 20060411
  2. MIRTAZAPINE [Concomitant]
     Indication: SLEEP DISORDER
     Route: 048
  3. ASPIRIN [Concomitant]
     Indication: THROMBOSIS PROPHYLAXIS
     Dosage: REPORTED AS DISPERSIBLE TABLETS
     Route: 048
  4. FUROSEMIDE [Concomitant]
     Indication: FLUID RETENTION
     Route: 048
  5. FELODIPINE [Concomitant]
     Indication: BLOOD PRESSURE
     Route: 048
  6. CANDESARTAN CILEXETIL [Concomitant]
     Indication: BLOOD PRESSURE
     Route: 048
  7. LEVOTHYROXINE SODIUM [Concomitant]
     Indication: HYPOTHYROIDISM
     Route: 048
  8. TAMOXIFEN CITRATE [Concomitant]
     Route: 048
     Dates: start: 20070801
  9. ADCAL [Concomitant]
     Route: 048
  10. DEPAKOTE [Concomitant]
     Route: 048

REACTIONS (3)
  - BREAST CANCER [None]
  - BREAST CANCER FEMALE [None]
  - MANIA [None]
